FAERS Safety Report 7513683-4 (Version None)
Quarter: 2011Q2

REPORT INFORMATION
  Report Type: 
  Country: None (occurrence: None)
  Receive Date: 20110531
  Receipt Date: 20110519
  Transmission Date: 20111010
  Serious: Yes (Other)
  Sender: FDA-Public Use
  Company Number: US-ASTRAZENECA-2011SE30752

PATIENT
  Sex: Female

DRUGS (3)
  1. ZOMIG [Suspect]
     Indication: HEADACHE
     Route: 048
  2. BOTOX [Concomitant]
  3. ZOMIG [Suspect]
     Indication: MIGRAINE
     Route: 048

REACTIONS (1)
  - NEOPLASM MALIGNANT [None]
